FAERS Safety Report 25213481 (Version 1)
Quarter: 2025Q2

REPORT INFORMATION
  Report Type: Spontaneous
  Country: US (occurrence: None)
  Receive Date: 20250417
  Receipt Date: 20250417
  Transmission Date: 20250717
  Serious: Yes (Life-Threatening, Hospitalization)
  Sender: FDA-CTU
  Company Number: None

PATIENT
  Sex: Female
  Weight: 102.5 kg

DRUGS (1)
  1. CARVYKTI [Suspect]
     Active Substance: CILTACABTAGENE AUTOLEUCEL
     Indication: Plasma cell myeloma
     Route: 041
     Dates: start: 20250204, end: 20250204

REACTIONS (27)
  - Lymphocyte adoptive therapy [None]
  - Cytokine release syndrome [None]
  - Haemophagocytic lymphohistiocytosis [None]
  - Fibrin D dimer increased [None]
  - Serum ferritin increased [None]
  - Acute kidney injury [None]
  - Acute kidney injury [None]
  - Encephalopathy [None]
  - Metabolic encephalopathy [None]
  - Immune effector cell-associated neurotoxicity syndrome [None]
  - Tumour lysis syndrome [None]
  - Haemofiltration [None]
  - Blood fibrinogen decreased [None]
  - Blood triglycerides increased [None]
  - Cytopenia [None]
  - Seizure like phenomena [None]
  - Respiratory failure [None]
  - Pulseless electrical activity [None]
  - Cerebral infarction [None]
  - Pneumonia [None]
  - Posterior reversible encephalopathy syndrome [None]
  - Cerebral haemorrhage [None]
  - Stem cell transplant [None]
  - Dialysis related complication [None]
  - Hyperkalaemia [None]
  - Chest pain [None]
  - Back pain [None]
